FAERS Safety Report 6098160-2 (Version None)
Quarter: 2009Q1

REPORT INFORMATION
  Report Type: 
  Country: None (occurrence: None)
  Receive Date: 20090227
  Receipt Date: 20090224
  Transmission Date: 20090719
  Serious: Yes (Death)
  Sender: FDA-Public Use
  Company Number: KE-B.I. PHARMACEUTICALS,INC./RIDGEFIELD-2009-BP-01727BP

PATIENT
  Age: 27 Year
  Sex: Female

DRUGS (6)
  1. VIRAMUNE [Suspect]
  2. ISONIAZID [Concomitant]
  3. RIFAMPIN [Concomitant]
  4. PYRIZINAMIDE [Concomitant]
  5. ETHAMBUTOL HCL [Concomitant]
  6. COTRIMOXAZOLE [Concomitant]

REACTIONS (1)
  - HEPATOTOXICITY [None]
